FAERS Safety Report 7499304-8 (Version None)
Quarter: 2011Q2

REPORT INFORMATION
  Report Type: 
  Country: None (occurrence: None)
  Receive Date: 20110524
  Receipt Date: 20110223
  Transmission Date: 20111010
  Serious: No
  Sender: FDA-Public Use
  Company Number: A0886410A

PATIENT
  Age: 87 Year
  Sex: Female

DRUGS (1)
  1. ARZERRA [Suspect]
     Route: 042
     Dates: start: 20100326, end: 20110215

REACTIONS (1)
  - ARTHRALGIA [None]
